FAERS Safety Report 12219240 (Version 1)
Quarter: 2016Q1

REPORT INFORMATION
  Report Type: Spontaneous
  Country: FR (occurrence: FR)
  Receive Date: 20160329
  Receipt Date: 20160329
  Transmission Date: 20160526
  Serious: Yes (Other)
  Sender: FDA-Public Use
  Company Number: FR-SA-2016SA059089

PATIENT
  Age: 49 Year
  Sex: Female

DRUGS (3)
  1. FARMORUBICINE [Concomitant]
     Active Substance: EPIRUBICIN HYDROCHLORIDE
     Dates: start: 200008, end: 200011
  2. TAXOTERE [Suspect]
     Active Substance: DOCETAXEL
     Indication: BREAST CANCER METASTATIC
     Dosage: DURATION: 5 CYCLES
     Route: 042
     Dates: start: 200011, end: 200103
  3. NAVELBINE [Concomitant]
     Active Substance: VINORELBINE TARTRATE
     Dates: start: 200008, end: 200011

REACTIONS (2)
  - Nail disorder [Recovered/Resolved]
  - Lacrimation increased [Recovered/Resolved]

NARRATIVE: CASE EVENT DATE: 200103
